FAERS Safety Report 15728077 (Version 2)
Quarter: 2018Q4

REPORT INFORMATION
  Report Type: Spontaneous
  Country: GB (occurrence: GB)
  Receive Date: 20181217
  Receipt Date: 20181228
  Transmission Date: 20190205
  Serious: Yes (Death)
  Sender: FDA-Public Use
  Company Number: GB-GW PHARMA-201812GBGW0618

PATIENT

DRUGS (6)
  1. OXCARBAZEPINE. [Concomitant]
     Active Substance: OXCARBAZEPINE
     Indication: STATUS EPILEPTICUS
     Dosage: 1200 MILLIGRAM, TID
     Route: 065
     Dates: start: 20180614, end: 20181204
  2. PHENOBARBITAL. [Concomitant]
     Active Substance: PHENOBARBITAL
     Indication: STATUS EPILEPTICUS
     Dosage: 450 MILLIGRAM, BID
     Route: 065
     Dates: start: 20180530, end: 20181204
  3. VALPROATE [Concomitant]
     Active Substance: VALPROIC ACID
     Indication: STATUS EPILEPTICUS
     Dosage: 1500 MILLIGRAM, BID
     Route: 065
     Dates: start: 20180820, end: 20181204
  4. EPIDIOLEX [Suspect]
     Active Substance: CANNABIDIOL
     Indication: STATUS EPILEPTICUS
     Dosage: 33.3MG/KG, 1500 MILLIGRAM, BID
     Dates: start: 20180911, end: 20181204
  5. PERAMPANEL [Concomitant]
     Active Substance: PERAMPANEL
     Indication: STATUS EPILEPTICUS
     Dosage: 12 MILLIGRAM, QD
     Route: 065
     Dates: end: 20181204
  6. CLOBAZAM. [Concomitant]
     Active Substance: CLOBAZAM
     Indication: STATUS EPILEPTICUS
     Dosage: 20 MILLIGRAM, BID
     Route: 065
     Dates: start: 20181107, end: 20181204

REACTIONS (1)
  - Death [Fatal]

NARRATIVE: CASE EVENT DATE: 20181204
